FAERS Safety Report 8161661-7 (Version None)
Quarter: 2012Q1

REPORT INFORMATION
  Report Type: 
  Country: None (occurrence: None)
  Receive Date: 20120224
  Receipt Date: 20120221
  Transmission Date: 20120608
  Serious: Yes (Other)
  Sender: FDA-Public Use
  Company Number: US-PFIZER INC-2012046002

PATIENT
  Sex: Female
  Weight: 54.422 kg

DRUGS (7)
  1. METOPROLOL [Concomitant]
     Dosage: UNK
  2. LASIX [Concomitant]
     Dosage: UNK
  3. COUMADIN [Concomitant]
     Dosage: UNK
  4. REVATIO [Suspect]
     Dosage: 20 MG, 3X/DAY
     Route: 048
  5. DIGOXIN [Concomitant]
     Dosage: UNK
  6. SPIRONOLACTONE [Concomitant]
     Dosage: UNK
  7. REVATIO [Suspect]
     Indication: ARTERIAL DISORDER
     Dosage: 20 MG, 2X/DAY
     Route: 048
     Dates: start: 20110601

REACTIONS (2)
  - CARDIAC FAILURE CONGESTIVE [None]
  - DIZZINESS [None]
